FAERS Safety Report 5463249-5 (Version None)
Quarter: 2007Q3

REPORT INFORMATION
  Report Type: 
  Country: None (occurrence: None)
  Receive Date: 20070920
  Receipt Date: 20070615
  Transmission Date: 20080115
  Serious: Yes (Other)
  Sender: FDA-Public Use
  Company Number: US-ROCHE-467551

PATIENT
  Age: 53 Year
  Sex: Female

DRUGS (6)
  1. PEGASYS [Suspect]
     Route: 058
     Dates: start: 20060519, end: 20060526
  2. PEGASYS [Suspect]
     Dosage: STRENGTH AND FORMULATION REPORTED AS 180MCG/.5ML. ON AN UNKNOWN DATE, SLOWLY INCREASING DOSE AND IN+
     Route: 058
     Dates: start: 20060707
  3. PEGASYS [Suspect]
     Route: 058
     Dates: start: 20060801
  4. RIBAVIRIN [Suspect]
     Route: 048
     Dates: start: 20060519, end: 20060526
  5. RIBAVIRIN [Suspect]
     Dosage: SLOWLY INCREASING DOSAGE AND IN MID AUGUST WAS RESUMED THE FULL DOSE 1200 MG DAILY.
     Route: 048
     Dates: start: 20060707, end: 20070501
  6. RIBAVIRIN [Suspect]
     Route: 048
     Dates: start: 20070501

REACTIONS (23)
  - AMNESIA [None]
  - ANAEMIA [None]
  - COLD SWEAT [None]
  - COUGH [None]
  - DIARRHOEA [None]
  - DYSGEUSIA [None]
  - FATIGUE [None]
  - HYPERHIDROSIS [None]
  - HYPOTHYROIDISM [None]
  - IMMUNODEFICIENCY [None]
  - INCREASED TENDENCY TO BRUISE [None]
  - MENTAL IMPAIRMENT [None]
  - NASAL CONGESTION [None]
  - NASAL DRYNESS [None]
  - NAUSEA [None]
  - NEOPLASM SKIN [None]
  - PAROSMIA [None]
  - PLATELET COUNT DECREASED [None]
  - RASH PRURITIC [None]
  - RED BLOOD CELL COUNT DECREASED [None]
  - SKIN INFECTION [None]
  - VIRAL INFECTION [None]
  - WEIGHT DECREASED [None]
